FAERS Safety Report 17881462 (Version 1)
Quarter: 2020Q2

REPORT INFORMATION
  Report Type: Spontaneous
  Country: US (occurrence: US)
  Receive Date: 20200610
  Receipt Date: 20200610
  Transmission Date: 20200714
  Serious: No
  Sender: FDA-Public Use
  Company Number: US-COLLEGIUM PHARMACEUTICAL, INC.-2020CGM00007

PATIENT
  Age: 52 Year
  Sex: Male
  Weight: 86.17 kg

DRUGS (2)
  1. XTAMPZA ER [Suspect]
     Active Substance: OXYCODONE
     Indication: INTERVERTEBRAL DISC PROTRUSION
     Dosage: 18 MG, 2X/DAY
     Route: 048
     Dates: start: 20190207
  2. XTAMPZA ER [Suspect]
     Active Substance: OXYCODONE
     Indication: POST LAMINECTOMY SYNDROME

REACTIONS (5)
  - Off label use [Not Recovered/Not Resolved]
  - Feeling drunk [Unknown]
  - Dizziness [Not Recovered/Not Resolved]
  - Euphoric mood [Unknown]
  - Product substitution issue [Not Recovered/Not Resolved]

NARRATIVE: CASE EVENT DATE: 201902
